FAERS Safety Report 25976105 (Version 3)
Quarter: 2025Q4

REPORT INFORMATION
  Report Type: Report from Study
  Country: US (occurrence: US)
  Receive Date: 20251029
  Receipt Date: 20251128
  Transmission Date: 20260117
  Serious: Yes (Other)
  Sender: MALLINCKRODT
  Company Number: US-MALLINCKRODT-MNK202506550

PATIENT
  Age: 43 Year
  Sex: Female

DRUGS (5)
  1. CORTICOTROPIN [Suspect]
     Active Substance: CORTICOTROPIN
     Indication: Systemic lupus erythematosus
     Route: 058
     Dates: start: 20250811, end: 2025
  2. CORTICOTROPIN [Suspect]
     Active Substance: CORTICOTROPIN
     Indication: Rheumatoid arthritis
     Route: 058
     Dates: start: 2025, end: 202510
  3. PREDNISONE [Concomitant]
     Active Substance: PREDNISONE
     Dosage: UNKNOWN
  4. RINVOQ [Concomitant]
     Active Substance: UPADACITINIB
     Dosage: UNKNOWN
  5. HYDROXYCHLOROQUINE DIPHOSPHATE [Concomitant]
     Active Substance: HYDROXYCHLOROQUINE DIPHOSPHATE
     Dosage: UNKNOWN

REACTIONS (10)
  - Crohn^s disease [Unknown]
  - Systemic lupus erythematosus [Unknown]
  - Anaemia [Unknown]
  - Illness [Unknown]
  - Thyroid disorder [Unknown]
  - Skin irritation [Unknown]
  - Weight increased [Unknown]
  - Headache [Recovering/Resolving]
  - Injection site erythema [Unknown]
  - Injection site pruritus [Unknown]

NARRATIVE: CASE EVENT DATE: 20250101
